FAERS Safety Report 7881576-9 (Version None)
Quarter: 2011Q4

REPORT INFORMATION
  Report Type: 
  Country: None (occurrence: None)
  Receive Date: 20111101
  Receipt Date: 20110527
  Transmission Date: 20120403
  Serious: No
  Sender: FDA-Public Use
  Company Number: US-AMGEN-USASP2011027824

PATIENT
  Age: 51 Year
  Sex: Female
  Weight: 286 kg

DRUGS (9)
  1. PREVACID [Concomitant]
     Dosage: 15 MG, UNK
  2. FERROUS SULFATE TAB [Concomitant]
  3. ENBREL [Suspect]
     Indication: PRODUCT USED FOR UNKNOWN INDICATION
     Dosage: 50 MG, 2 TIMES/WK
  4. PRAMIPEXOLE DIHYDROCHLORIDE [Concomitant]
     Dosage: 1 MG, UNK
  5. NABUMETONE [Concomitant]
     Dosage: 750 MG, UNK
  6. FLUOXETINE HCL [Concomitant]
     Dosage: 20 MG, UNK
  7. FLEXERIL [Concomitant]
     Dosage: 5 MG, UNK
  8. FENTANYL-100 [Concomitant]
  9. CALCIUM D                          /00944201/ [Concomitant]

REACTIONS (1)
  - JOINT SWELLING [None]
